FAERS Safety Report 4307473-3 (Version None)
Quarter: 2004Q1

REPORT INFORMATION
  Report Type: 
  Country: None (occurrence: None)
  Receive Date: 20040226
  Receipt Date: 20040124
  Transmission Date: 20041129
  Serious: Yes (Hospitalization)
  Sender: FDA-Public Use
  Company Number: 200410040BVD

PATIENT
  Sex: Male

DRUGS (1)
  1. AVELOX [Suspect]
     Indication: BRONCHITIS
     Dosage: 400 MG, TOTAL DAILY, ORAL
     Route: 048

REACTIONS (1)
  - ARRHYTHMIA [None]
